FAERS Safety Report 13853803 (Version 1)
Quarter: 2017Q3

REPORT INFORMATION
  Report Type: Spontaneous
  Country: FR (occurrence: FR)
  Receive Date: 20170810
  Receipt Date: 20170810
  Transmission Date: 20171127
  Serious: Yes (Hospitalization)
  Sender: FDA-Public Use
  Company Number: FR-JNJFOC-20170803098

PATIENT
  Age: 42 Year
  Sex: Male

DRUGS (5)
  1. NALTREXONE [Suspect]
     Active Substance: NALTREXONE
     Indication: POISONING DELIBERATE
     Route: 048
     Dates: start: 20170619, end: 20170619
  2. ALCOHOL. [Suspect]
     Active Substance: ALCOHOL
     Indication: PRODUCT USED FOR UNKNOWN INDICATION
     Route: 065
  3. RISPERDAL [Suspect]
     Active Substance: RISPERIDONE
     Indication: POISONING DELIBERATE
     Dosage: AT 2200 HOURS
     Route: 048
     Dates: start: 20170619, end: 20170619
  4. THERALENE [Suspect]
     Active Substance: TRIMEPRAZINE
     Indication: POISONING DELIBERATE
     Route: 048
     Dates: start: 20170619, end: 20170619
  5. LOXAPAC [Suspect]
     Active Substance: LOXAPINE SUCCINATE
     Indication: POISONING DELIBERATE
     Route: 048
     Dates: start: 20170619, end: 20170619

REACTIONS (6)
  - Intentional overdose [Unknown]
  - Hypertension [Recovered/Resolved]
  - Electrocardiogram QT prolonged [Recovered/Resolved]
  - Sinus tachycardia [Recovered/Resolved]
  - Electrocardiogram QRS complex prolonged [Recovered/Resolved]
  - Atrioventricular block [Recovered/Resolved]

NARRATIVE: CASE EVENT DATE: 20170619
